FAERS Safety Report 11502219 (Version 1)
Quarter: 2015Q3

REPORT INFORMATION
  Report Type: Spontaneous
  Country: US (occurrence: US)
  Receive Date: 20150914
  Receipt Date: 20150914
  Transmission Date: 20151125
  Serious: No
  Sender: FDA-Public Use
  Company Number: US-AMGEN-USASP2015094063

PATIENT
  Age: 57 Year
  Sex: Female

DRUGS (1)
  1. ENBREL [Suspect]
     Active Substance: ETANERCEPT
     Indication: PSORIATIC ARTHROPATHY
     Dosage: 50 MG, QWK
     Route: 058
     Dates: start: 201504, end: 201506

REACTIONS (6)
  - Abdominal pain upper [Unknown]
  - Rash [Unknown]
  - Back pain [Unknown]
  - Herpes zoster [Unknown]
  - Mouth ulceration [Unknown]
  - Urticaria [Unknown]

NARRATIVE: CASE EVENT DATE: 20150620
